FAERS Safety Report 8776678 (Version 1)
Quarter: 2012Q4

REPORT INFORMATION
  Report Type: 
  Country: AU (occurrence: AU)
  Receive Date: 20120910
  Receipt Date: 20120910
  Transmission Date: 20130627
  Serious: Yes (Hospitalization)
  Sender: FDA-Public Use
  Company Number: AU-009507513-1208AUS011169

PATIENT

DRUGS (6)
  1. MIRTAZAPINE [Suspect]
     Indication: DEPRESSION
     Dosage: 30 mg, qd
     Route: 048
     Dates: end: 20120224
  2. FENTANYL [Suspect]
     Dosage: 45 mg, qd
     Dates: start: 20120219, end: 20120224
  3. ATORVASTATIN [Concomitant]
  4. CALCIUM (UNSPECIFIED) [Concomitant]
  5. CHOLECALCIFEROL [Concomitant]
  6. ACETAMINOPHEN [Concomitant]

REACTIONS (2)
  - Tardive dyskinesia [Recovered/Resolved]
  - Tremor [None]
